FAERS Safety Report 4846634-1 (Version None)
Quarter: 2005Q4

REPORT INFORMATION
  Report Type: 
  Country: None (occurrence: None)
  Receive Date: 20051202
  Receipt Date: 20051121
  Transmission Date: 20060501
  Serious: Yes (Hospitalization, Disabling)
  Sender: FDA-Public Use
  Company Number: 2005JP002185

PATIENT
  Age: 43 Year
  Sex: Female

DRUGS (5)
  1. PROGRAF [Suspect]
     Indication: RENAL TRANSPLANT
     Dates: start: 20040101, end: 20040901
  2. PROGRAF [Suspect]
     Indication: RENAL TRANSPLANT
     Dates: start: 20040901, end: 20050101
  3. MYCOPHENOLATE MOFETIL (MYCOPHENOLATE MOFETIL) [Concomitant]
  4. METHYLPREDNISOLONE [Concomitant]
  5. BASILIXIMAB (BASILIXIMAB) [Concomitant]

REACTIONS (7)
  - CYTOMEGALOVIRUS INFECTION [None]
  - GRAFT DYSFUNCTION [None]
  - HAEMATURIA [None]
  - HYDRONEPHROSIS [None]
  - LYMPHOPROLIFERATIVE DISORDER [None]
  - NEPHRITIS INTERSTITIAL [None]
  - RENAL HYPERTROPHY [None]
